FAERS Safety Report 9233348 (Version 1)
Quarter: 2013Q2

REPORT INFORMATION
  Report Type: Spontaneous
  Country: US (occurrence: None)
  Receive Date: 20130415
  Receipt Date: 20130415
  Transmission Date: 20140414
  Serious: Yes (Other)
  Sender: FDA-Public Use
  Company Number: None

PATIENT
  Age: 71 Year
  Sex: Male
  Weight: 99.79 kg

DRUGS (1)
  1. XARELTO [Suspect]
     Indication: ATRIAL FIBRILLATION
     Dates: start: 20130315, end: 20130412

REACTIONS (7)
  - Rectal haemorrhage [None]
  - Back pain [None]
  - Renal pain [None]
  - Pain in extremity [None]
  - Plantar erythema [None]
  - Fatigue [None]
  - Dyspnoea [None]
